FAERS Safety Report 6315919-4 (Version None)
Quarter: 2009Q3

REPORT INFORMATION
  Report Type: 
  Country: None (occurrence: None)
  Receive Date: 20090820
  Receipt Date: 20090814
  Transmission Date: 20100115
  Serious: Yes (Other)
  Sender: FDA-Public Use
  Company Number: US-ELI_LILLY_AND_COMPANY-US200908003359

PATIENT
  Sex: Female

DRUGS (18)
  1. HUMALOG [Suspect]
  2. HUMALOG [Suspect]
  3. NOVOLOG [Concomitant]
  4. LEVEMIR [Concomitant]
  5. LYRICA [Concomitant]
  6. MAXALT /USA/ [Concomitant]
     Indication: MIGRAINE
  7. EFFEXOR [Concomitant]
  8. LOVASTATIN [Concomitant]
  9. TRAZODONE HCL [Concomitant]
  10. ZYRTEC [Concomitant]
  11. SINGULAIR [Concomitant]
  12. LEVOXYL [Concomitant]
  13. XOPENEX [Concomitant]
  14. DILANTIN [Concomitant]
  15. ASPIRIN [Concomitant]
     Dosage: 81 MG, UNKNOWN
  16. ADVAIR DISKUS 100/50 [Concomitant]
  17. MULTI-VITAMIN [Concomitant]
  18. CALCIUM [Concomitant]

REACTIONS (11)
  - BLOOD GLUCOSE INCREASED [None]
  - DIABETES MELLITUS INADEQUATE CONTROL [None]
  - DRUG INEFFECTIVE [None]
  - FEELING ABNORMAL [None]
  - GAIT DISTURBANCE [None]
  - GLYCOSYLATED HAEMOGLOBIN INCREASED [None]
  - HEMIPLEGIA [None]
  - HYPOGLYCAEMIC SEIZURE [None]
  - MUSCULAR WEAKNESS [None]
  - PRODUCT QUALITY ISSUE [None]
  - RENAL IMPAIRMENT [None]
